FAERS Safety Report 21136638 (Version 1)
Quarter: 2022Q3

REPORT INFORMATION
  Report Type: Spontaneous
  Country: US (occurrence: None)
  Receive Date: 20220726
  Receipt Date: 20220726
  Transmission Date: 20221026
  Serious: Yes (Hospitalization)
  Sender: FDA-Public Use
  Company Number: None

PATIENT
  Sex: Male

DRUGS (1)
  1. PERTZYE [Suspect]
     Active Substance: PANCRELIPASE AMYLASE\PANCRELIPASE LIPASE\PANCRELIPASE PROTEASE
     Indication: Cystic fibrosis
     Dosage: 8000-28750 UNIT ORAL??GIVE 4 CAPSULES BY MOUTH WITH EVERY 8 OZ OF KATE FARMS 1.5 AND GIVE 3 CAPSULE
     Route: 048
     Dates: start: 20220506

REACTIONS (1)
  - Vomiting [None]

NARRATIVE: CASE EVENT DATE: 20220701
